FAERS Safety Report 9029207 (Version 1)
Quarter: 2013Q1

REPORT INFORMATION
  Report Type: Spontaneous
  Country: US (occurrence: US)
  Receive Date: 20130125
  Receipt Date: 20130125
  Transmission Date: 20140127
  Serious: Yes (Death)
  Sender: FDA-Public Use
  Company Number: US-PAR PHARMACEUTICAL, INC-2013SCPR005400

PATIENT
  Age: 51 Year
  Sex: Male

DRUGS (4)
  1. ALPRAZOLAM [Suspect]
     Indication: PRODUCT USED FOR UNKNOWN INDICATION
     Dosage: UNK, INGST + ASPIR
  2. ZOLPIDEM TARTRATE ER [Suspect]
     Indication: PRODUCT USED FOR UNKNOWN INDICATION
     Dosage: UNK, INGST + ASPIR
  3. ACETAMINOPHEN W/HYDROCODONE [Suspect]
     Indication: PRODUCT USED FOR UNKNOWN INDICATION
     Dosage: UNK, INGST + ASPIR
  4. DIPHENHYDRAMINE [Suspect]
     Indication: PRODUCT USED FOR UNKNOWN INDICATION
     Dosage: UNK, INGST + ASPIR

REACTIONS (3)
  - Death [Fatal]
  - Completed suicide [Fatal]
  - Cardio-respiratory arrest [Fatal]
